FAERS Safety Report 5965637-7 (Version None)
Quarter: 2008Q4

REPORT INFORMATION
  Report Type: 
  Country: None (occurrence: None)
  Receive Date: 20081121
  Receipt Date: 20081121
  Transmission Date: 20090506
  Serious: No
  Sender: FDA-Public Use
  Company Number: None

PATIENT
  Sex: Female
  Weight: 64.4108 kg

DRUGS (1)
  1. ROPINIROLE [Suspect]
     Indication: RESTLESS LEGS SYNDROME
     Dosage: .5 MG ONCE DAILY PO
     Route: 048
     Dates: start: 20081111, end: 20081115

REACTIONS (2)
  - PARADOXICAL DRUG REACTION [None]
  - REBOUND EFFECT [None]
